FAERS Safety Report 11114655 (Version 1)
Quarter: 2015Q2

REPORT INFORMATION
  Report Type: Spontaneous
  Country: RU (occurrence: None)
  Receive Date: 20150512
  Receipt Date: 20150512
  Transmission Date: 20150821
  Serious: Yes (Other)
  Sender: FDA-Public Use
  Company Number: 2015HINSPO0421

PATIENT
  Age: 6 Year
  Sex: Male
  Weight: 40 kg

DRUGS (1)
  1. LEVETIRACTAM [Suspect]
     Active Substance: LEVETIRACETAM
     Indication: EPILEPSY
     Route: 048
     Dates: start: 20131219, end: 20140513

REACTIONS (4)
  - Speech disorder [None]
  - Electroencephalogram abnormal [None]
  - Drug ineffective [None]
  - Epilepsy [None]

NARRATIVE: CASE EVENT DATE: 20131219
